FAERS Safety Report 5119052-9 (Version None)
Quarter: 2006Q3

REPORT INFORMATION
  Report Type: 
  Country: None (occurrence: None)
  Receive Date: 20060927
  Receipt Date: 20060913
  Transmission Date: 20061208
  Serious: Yes (Hospitalization)
  Sender: FDA-Public Use
  Company Number: 2006S1000186

PATIENT
  Age: 25 Year
  Sex: Female

DRUGS (10)
  1. CUBICIN [Suspect]
     Indication: OSTEOMYELITIS
     Dosage: 320 MG; Q24H; IV
     Route: 042
     Dates: start: 20060720, end: 20060823
  2. ELAVIL [Concomitant]
  3. KLONOPIN [Concomitant]
  4. WELLBUTRIN [Concomitant]
  5. ADDERALL 10 [Concomitant]
  6. LYRICA [Concomitant]
  7. ZESTRIL [Concomitant]
  8. METHADONE HCL [Concomitant]
  9. PANTOPRAZOLE SODIUM [Concomitant]
  10. MIRALAX [Concomitant]

REACTIONS (2)
  - COMPARTMENT SYNDROME [None]
  - RHABDOMYOLYSIS [None]
